FAERS Safety Report 9019105 (Version 2)
Quarter: 2013Q1

REPORT INFORMATION
  Report Type: Report from Study
  Country: GB (occurrence: GB)
  Receive Date: 20130118
  Receipt Date: 20130122
  Transmission Date: 20140127
  Serious: Yes (Other)
  Sender: FDA-Public Use
  Company Number: GB-JNJFOC-20130107990

PATIENT
  Sex: Male

DRUGS (5)
  1. GOLIMUMAB [Suspect]
     Indication: PRODUCT USED FOR UNKNOWN INDICATION
     Route: 058
  2. GOLIMUMAB [Suspect]
     Indication: PRODUCT USED FOR UNKNOWN INDICATION
     Route: 058
     Dates: start: 20130109
  3. SULFASALAZINE [Concomitant]
  4. CO-CODAMOL [Concomitant]
  5. ARCOXIA [Concomitant]

REACTIONS (2)
  - Axillary mass [Not Recovered/Not Resolved]
  - Malaise [Not Recovered/Not Resolved]
